FAERS Safety Report 9645821 (Version 1)
Quarter: 2013Q4

REPORT INFORMATION
  Report Type: Spontaneous
  Country: US (occurrence: None)
  Receive Date: 20131023
  Receipt Date: 20131023
  Transmission Date: 20140711
  Serious: Yes (Hospitalization)
  Sender: FDA-Public Use
  Company Number: UTC-039211

PATIENT
  Sex: Female

DRUGS (3)
  1. REMODULIN [Suspect]
     Dosage: 11.52 UG/KG (0.008 UG/KG, 1 IN 1 MIN)
     Route: 041
     Dates: start: 201308
  2. LETAIRIS(AMBRISENTAN) [Concomitant]
  3. LETAIRIS(AMBRISENTAN) [Concomitant]

REACTIONS (2)
  - Condition aggravated [None]
  - Ascites [None]
